FAERS Safety Report 6392329-5 (Version None)
Quarter: 2009Q4

REPORT INFORMATION
  Report Type: 
  Country: None (occurrence: None)
  Receive Date: 20091007
  Receipt Date: 20090928
  Transmission Date: 20100525
  Serious: Yes (Hospitalization)
  Sender: FDA-Public Use
  Company Number: PHHO2009GB12031

PATIENT
  Sex: Female

DRUGS (4)
  1. RAD 666 RAD+TAB [Suspect]
     Indication: METASTATIC RENAL CELL CARCINOMA
     Dosage: 10 MG, QD
     Route: 048
     Dates: start: 20090903, end: 20090928
  2. DICLOFENAC SODIUM [Concomitant]
     Dosage: UNK
  3. PYRIDOXINE [Concomitant]
  4. FLUOXETINE [Concomitant]
     Dosage: UNK

REACTIONS (2)
  - CHEST DISCOMFORT [None]
  - TROPONIN I INCREASED [None]
